FAERS Safety Report 24211401 (Version 2)
Quarter: 2024Q3

REPORT INFORMATION
  Report Type: Report from Study
  Country: US (occurrence: US)
  Receive Date: 20240814
  Receipt Date: 20240902
  Transmission Date: 20241016
  Serious: Yes (Hospitalization, Other)
  Sender: IPSEN
  Company Number: US-IPSEN Group, Research and Development-2024-14161

PATIENT
  Age: 75 Year
  Sex: Female

DRUGS (1)
  1. SOMATULINE DEPOT [Suspect]
     Active Substance: LANREOTIDE ACETATE
     Indication: Carcinoid tumour
     Route: 058
     Dates: start: 20240409, end: 20240827

REACTIONS (3)
  - Biliary obstruction [Unknown]
  - Abdominal pain upper [Unknown]
  - Hospice care [Unknown]

NARRATIVE: CASE EVENT DATE: 20240701
